FAERS Safety Report 7763927-9 (Version None)
Quarter: 2011Q3

REPORT INFORMATION
  Report Type: 
  Country: None (occurrence: None)
  Receive Date: 20110921
  Receipt Date: 20110915
  Transmission Date: 20111222
  Serious: Yes (Death)
  Sender: FDA-Public Use
  Company Number: US-CELGENEUS-163-21880-11091978

PATIENT
  Sex: Male

DRUGS (8)
  1. REVLIMID [Suspect]
     Dosage: 5 MILLIGRAM
     Route: 048
     Dates: start: 20110701
  2. FLUCONAZOLE [Concomitant]
     Route: 065
  3. BACTRIM DS [Concomitant]
     Route: 065
  4. OXYCONTIN [Concomitant]
     Route: 065
  5. ACYCLOVIR [Concomitant]
     Route: 065
  6. MULTI-VITAMINS [Concomitant]
     Route: 065
  7. PROTONIX [Concomitant]
     Route: 065
  8. OXYCODONE HCL [Concomitant]
     Route: 065

REACTIONS (1)
  - DEATH [None]
